FAERS Safety Report 11010289 (Version 1)
Quarter: 2015Q2

REPORT INFORMATION
  Report Type: Spontaneous
  Country: GB (occurrence: GB)
  Receive Date: 20150410
  Receipt Date: 20150410
  Transmission Date: 20150821
  Serious: Yes (Other)
  Sender: FDA-Public Use
  Company Number: GB-ACTAVIS-2015-07474

PATIENT
  Age: 48 Year
  Sex: Female

DRUGS (5)
  1. PARACETAMOL [Concomitant]
     Active Substance: ACETAMINOPHEN
     Indication: PAIN
     Dosage: 500 MG, UNK - 1 EVERY 4-6 HOURS, UP TO 4 TIMES A DAY. ONGOING.
     Route: 048
  2. FULTIUM [Concomitant]
     Indication: VITAMIN D DEFICIENCY
     Dosage: 800 IU, DAILY
     Route: 048
  3. AMITRIPTYLINE [Concomitant]
     Active Substance: AMITRIPTYLINE
     Indication: PAIN
     Dosage: 30 MG, DAILY - 10MG IN MORNING, 20MG AT NIGHT.
     Route: 048
  4. NEFOPAM [Concomitant]
     Active Substance: NEFOPAM
     Indication: PAIN
     Dosage: 60 MG, TID
     Route: 048
  5. GABAPENTIN (UNKNOWN) [Suspect]
     Active Substance: GABAPENTIN
     Indication: PAIN
     Dosage: UNK
     Route: 048
     Dates: start: 201405, end: 201407

REACTIONS (2)
  - Drug withdrawal syndrome [Recovered/Resolved]
  - Dependence [Recovered/Resolved]

NARRATIVE: CASE EVENT DATE: 20140709
